FAERS Safety Report 8514267-1 (Version None)
Quarter: 2012Q3

REPORT INFORMATION
  Report Type: 
  Country: None (occurrence: None)
  Receive Date: 20120717
  Receipt Date: 20120711
  Transmission Date: 20120928
  Serious: Yes (Hospitalization)
  Sender: FDA-Public Use
  Company Number: US-PFIZER INC-2012169116

PATIENT
  Sex: Female

DRUGS (1)
  1. INLYTA [Suspect]

REACTIONS (2)
  - ASTHENIA [None]
  - FALL [None]
